FAERS Safety Report 6949251-2 (Version None)
Quarter: 2010Q3

REPORT INFORMATION
  Report Type: 
  Country: None (occurrence: None)
  Receive Date: 20100828
  Receipt Date: 20091210
  Transmission Date: 20110219
  Serious: No
  Sender: FDA-Public Use
  Company Number: US-ABBOTT-09P-163-0614418-00

PATIENT
  Sex: Male
  Weight: 90.8 kg

DRUGS (4)
  1. NIASPAN [Suspect]
     Indication: BLOOD TRIGLYCERIDES INCREASED
     Dosage: EVERY NIGHT
     Dates: start: 20091106, end: 20091119
  2. NIASPAN [Suspect]
     Dosage: EVERY NIGHT
     Dates: start: 20091120
  3. TRILIPIX [Concomitant]
     Indication: BLOOD TRIGLYCERIDES INCREASED
     Dosage: EVERY MORNING
  4. ASPIRIN [Concomitant]
     Indication: PRODUCT USED FOR UNKNOWN INDICATION
     Dosage: 1/2 HR BEFORE TAKING NIASPAN

REACTIONS (2)
  - FLUSHING [None]
  - PRURITUS [None]
